FAERS Safety Report 7057592-6 (Version None)
Quarter: 2010Q4

REPORT INFORMATION
  Report Type: 
  Country: None (occurrence: None)
  Receive Date: 20101022
  Receipt Date: 20101013
  Transmission Date: 20110411
  Serious: Yes (Hospitalization)
  Sender: FDA-Public Use
  Company Number: KR-ROCHE-728369

PATIENT
  Sex: Female

DRUGS (18)
  1. TOCILIZUMAB [Suspect]
     Indication: RHEUMATOID ARTHRITIS
     Route: 041
     Dates: start: 20100512, end: 20100830
  2. BLINDED TOCILIZUMAB [Suspect]
     Indication: RHEUMATOID ARTHRITIS
     Route: 042
     Dates: start: 20091125, end: 20100426
  3. METHOTREXATE [Concomitant]
     Route: 048
     Dates: start: 20040909, end: 20100908
  4. METHOTREXATE [Concomitant]
     Route: 048
     Dates: start: 20090930
  5. METHOTREXATE [Concomitant]
     Route: 048
     Dates: start: 20100924
  6. ACECLOFENAC [Concomitant]
     Route: 048
     Dates: start: 20100110, end: 20100908
  7. ACECLOFENAC [Concomitant]
     Route: 048
     Dates: start: 20100924
  8. PREDNISONE [Concomitant]
     Route: 048
     Dates: start: 20070411, end: 20100908
  9. PREDNISONE [Concomitant]
     Route: 048
     Dates: start: 20100924
  10. FOLIC ACID [Concomitant]
     Route: 048
     Dates: start: 20080918, end: 20100908
  11. FOLIC ACID [Concomitant]
     Route: 048
     Dates: start: 20100924
  12. FOSAMAX PLUS D [Concomitant]
     Dosage: ALENDRONIC ACID 70MGAVITAMIN D3 5600IU
     Route: 048
     Dates: start: 20090528, end: 20100908
  13. FOSAMAX PLUS D [Concomitant]
     Dosage: ALENDRONIC ACID 70MGAVITAMIN D3 5600IU
     Route: 048
     Dates: start: 20100924
  14. REBAMIPIDE [Concomitant]
     Route: 048
     Dates: start: 20040102
  15. REBAMIPIDE [Concomitant]
     Route: 048
     Dates: start: 20081218, end: 20100908
  16. REBAMIPIDE [Concomitant]
     Route: 048
     Dates: start: 20100924
  17. CILNIDIPINE [Concomitant]
     Route: 048
     Dates: start: 20040601
  18. DIOVAN HCT [Concomitant]
     Dosage: VALSARTAN 160 MGV HYDROCHLOROTHIZID 12.5 MG
     Route: 048
     Dates: start: 20040601

REACTIONS (3)
  - HIP FRACTURE [None]
  - OSTEONECROSIS [None]
  - PELVIC FRACTURE [None]
